FAERS Safety Report 8467496 (Version 13)
Quarter: 2018Q2

REPORT INFORMATION
  Report Type: Report from Study
  Country: CA (occurrence: CA)
  Receive Date: 20120320
  Receipt Date: 20180417
  Transmission Date: 20180711
  Serious: Yes (Hospitalization)
  Sender: FDA-Public Use
  Company Number: PHHY2012CA009431

PATIENT
  Age: 58 Year
  Sex: Female

DRUGS (8)
  1. SANDOSTATIN LAR DEPOT [Suspect]
     Active Substance: OCTREOTIDE ACETATE
     Indication: NEUROENDOCRINE TUMOUR
     Dosage: 30 MG,QMO (EVERY FOUR WEEKS)
     Route: 030
     Dates: start: 20111215
  2. SANDOSTATIN LAR DEPOT [Suspect]
     Active Substance: OCTREOTIDE ACETATE
     Dosage: 60 MG, EVERY 4 WEEKS, QMO
     Route: 030
     Dates: start: 201204, end: 20161116
  3. SANDOSTATIN LAR DEPOT [Suspect]
     Active Substance: OCTREOTIDE ACETATE
     Dosage: 30 MG, QMO
     Route: 030
  4. SANDOSTATIN LAR DEPOT [Suspect]
     Active Substance: OCTREOTIDE ACETATE
     Dosage: 60 MG, QW2 (EVERY 2 WEEKS)
     Route: 030
  5. SANDOSTATIN LAR DEPOT [Suspect]
     Active Substance: OCTREOTIDE ACETATE
     Dosage: 30 MG, EVERY 4 WEEKS, QMO
     Route: 030
  6. SANDOSTATIN LAR DEPOT [Suspect]
     Active Substance: OCTREOTIDE ACETATE
     Dosage: 30 MG, QMO (EVERY 4 WEEKS)
     Route: 030
     Dates: start: 201612
  7. SANDOSTATIN LAR DEPOT [Suspect]
     Active Substance: OCTREOTIDE ACETATE
     Dosage: 60 MG, QMO (ONCE A MONTH)
     Route: 030
     Dates: start: 20160603
  8. OCTREOTIDE. [Suspect]
     Active Substance: OCTREOTIDE
     Indication: NEUROENDOCRINE TUMOUR
     Dosage: 300 UG, BID
     Route: 058
     Dates: start: 201205, end: 201205

REACTIONS (17)
  - Fatigue [Unknown]
  - Dry mouth [Not Recovered/Not Resolved]
  - Blood pressure increased [Unknown]
  - Facial pain [Not Recovered/Not Resolved]
  - Flushing [Unknown]
  - Hepatic lesion [Unknown]
  - Feeling hot [Unknown]
  - Vomiting [Unknown]
  - Food poisoning [Unknown]
  - Anxiety [Unknown]
  - Pain of skin [Not Recovered/Not Resolved]
  - Dry eye [Not Recovered/Not Resolved]
  - Syringe issue [Unknown]
  - Overdose [Unknown]
  - Nausea [Unknown]
  - Pain [Not Recovered/Not Resolved]
  - Diarrhoea [Unknown]

NARRATIVE: CASE EVENT DATE: 201201
